FAERS Safety Report 5792085-5 (Version None)
Quarter: 2008Q2

REPORT INFORMATION
  Report Type: 
  Country: None (occurrence: None)
  Receive Date: 20080626
  Receipt Date: 20080404
  Transmission Date: 20081010
  Serious: No
  Sender: FDA-Public Use
  Company Number: US-ASTRAZENECA-2008UW06932

PATIENT
  Age: 45 Year
  Sex: Male
  Weight: 90.7 kg

DRUGS (2)
  1. PULMICORT FLEXHALER [Suspect]
     Indication: COUGH
     Dosage: 90 MCG ONE INHALATION TWICE A DAY
     Route: 055
     Dates: start: 20080404
  2. ALBUTEROL [Concomitant]
     Dosage: 90 UG ONE INHALATION TWICE A DAY
     Route: 055
     Dates: start: 20080404

REACTIONS (2)
  - DRUG INEFFECTIVE [None]
  - INCORRECT DOSE ADMINISTERED [None]
